FAERS Safety Report 4892451-6 (Version None)
Quarter: 2006Q1

REPORT INFORMATION
  Report Type: 
  Country: None (occurrence: None)
  Receive Date: 20060124
  Receipt Date: 20060116
  Transmission Date: 20060701
  Serious: Yes (Disabling)
  Sender: FDA-Public Use
  Company Number: 2005168893

PATIENT
  Age: 34 Year
  Sex: Male

DRUGS (1)
  1. CABERGOLINE [Suspect]
     Indication: PARKINSON'S DISEASE
     Dosage: 4 MG, 2:4, ORAL
     Route: 048
     Dates: start: 20040621, end: 20051202

REACTIONS (3)
  - ABNORMAL BEHAVIOUR [None]
  - OBSESSIVE-COMPULSIVE DISORDER [None]
  - PSYCHOSEXUAL DISORDER [None]
